FAERS Safety Report 17291932 (Version 1)
Quarter: 2020Q1

REPORT INFORMATION
  Report Type: Spontaneous
  Country: US (occurrence: US)
  Receive Date: 20200118
  Receipt Date: 20200118
  Transmission Date: 20200409
  Serious: No
  Sender: FDA-Public Use
  Company Number: None

PATIENT
  Age: 84 Year
  Sex: Female
  Weight: 47.25 kg

DRUGS (6)
  1. MVI [Concomitant]
     Active Substance: VITAMINS
  2. METHIMAZOLE. [Concomitant]
     Active Substance: METHIMAZOLE
  3. VITAMIN D [Concomitant]
     Active Substance: VITAMIN D NOS
  4. ZOLEDRONIC ACID [Suspect]
     Active Substance: ZOLEDRONIC ACID
     Indication: OSTEOPOROSIS
     Dosage: ?          OTHER FREQUENCY:ANNUALLY;?
     Route: 041
     Dates: start: 20200118, end: 20200118
  5. CALCIUM [Concomitant]
     Active Substance: CALCIUM
  6. PROTONIX [Concomitant]
     Active Substance: PANTOPRAZOLE SODIUM

REACTIONS (4)
  - Hypertension [None]
  - Palpitations [None]
  - Fatigue [None]
  - Infusion related reaction [None]

NARRATIVE: CASE EVENT DATE: 20200118
